FAERS Safety Report 10035522 (Version 1)
Quarter: 2014Q1

REPORT INFORMATION
  Report Type: Spontaneous
  Country: US (occurrence: US)
  Receive Date: 20140325
  Receipt Date: 20140325
  Transmission Date: 20141002
  Serious: No
  Sender: FDA-Public Use
  Company Number: US-PFIZER INC-2014081671

PATIENT
  Age: 50 Year
  Sex: Male

DRUGS (2)
  1. LYRICA [Suspect]
     Indication: NEURALGIA
     Dosage: UNK
  2. CYMBALTA [Suspect]
     Indication: NEURALGIA
     Dosage: UNK

REACTIONS (1)
  - Local swelling [Recovered/Resolved]
